FAERS Safety Report 7626172-3 (Version None)
Quarter: 2011Q3

REPORT INFORMATION
  Report Type: 
  Country: None (occurrence: None)
  Receive Date: 20110721
  Receipt Date: 20110708
  Transmission Date: 20111222
  Serious: Yes (Other)
  Sender: FDA-Public Use
  Company Number: PHFR2011GB02873

PATIENT
  Sex: Male

DRUGS (2)
  1. HYOSCINE HYDROBROMIDE [Concomitant]
     Dosage: 300 UG DAILY
     Route: 048
  2. CLOZAPINE [Suspect]
     Indication: SCHIZOPHRENIA
     Dosage: 350 MG DAILY
     Route: 048
     Dates: start: 20020917

REACTIONS (3)
  - LYMPHOCYTE COUNT INCREASED [None]
  - WHITE BLOOD CELL COUNT INCREASED [None]
  - MULTIPLE SCLEROSIS [None]
